FAERS Safety Report 8161214-0 (Version None)
Quarter: 2012Q1

REPORT INFORMATION
  Report Type: 
  Country: None (occurrence: None)
  Receive Date: 20120224
  Receipt Date: 20120214
  Transmission Date: 20120608
  Serious: Yes (Hospitalization, Other)
  Sender: FDA-Public Use
  Company Number: GB-ACCORD-011683

PATIENT
  Age: 67 Year
  Sex: Female

DRUGS (10)
  1. LANSOPRAZOLE [Concomitant]
     Indication: GASTRITIS
     Route: 048
     Dates: start: 20111201
  2. ATENOLOL [Concomitant]
     Indication: HYPERTENSION
     Route: 048
     Dates: start: 20090905, end: 20111208
  3. AMITRIPTYLINE HCL [Concomitant]
     Route: 048
     Dates: start: 20100607
  4. PREDNISOLONE [Concomitant]
     Indication: RASH
     Route: 048
     Dates: start: 20111208
  5. CHLORPHENIRAMINE MALEATE [Concomitant]
     Indication: RASH
     Route: 048
     Dates: start: 20111208
  6. INVESTIGATIONAL DRUG [Suspect]
     Indication: PANCREATIC CARCINOMA
     Route: 023
     Dates: start: 20111110, end: 20111123
  7. CETIRIZINE HCL [Concomitant]
     Indication: RASH
     Route: 048
     Dates: start: 20090919, end: 20101208
  8. GEMCITABINE [Suspect]
     Dosage: 1558 MG CYCLICAL
     Route: 042
     Dates: start: 20111123, end: 20111130
  9. MORPHINE SULFATE [Concomitant]
     Route: 048
     Dates: start: 20111123
  10. FLUCONAZOLE [Concomitant]
     Indication: ANTIFUNGAL TREATMENT
     Route: 048

REACTIONS (8)
  - PAIN [None]
  - VOMITING [None]
  - FATIGUE [None]
  - RASH [None]
  - NAUSEA [None]
  - GASTRITIS [None]
  - GASTROINTESTINAL HYPOMOTILITY [None]
  - INFECTION [None]
